FAERS Safety Report 25132135 (Version 1)
Quarter: 2025Q1

REPORT INFORMATION
  Report Type: Spontaneous
  Country: US (occurrence: None)
  Receive Date: 20250328
  Receipt Date: 20250328
  Transmission Date: 20250408
  Serious: No
  Sender: AXSOME THERAPEUTICS, INC.
  Company Number: US-ARIS GLOBAL-AXS202404-000485

PATIENT
  Age: 26 Year
  Sex: Female

DRUGS (1)
  1. SUNOSI [Suspect]
     Active Substance: SOLRIAMFETOL
     Indication: Product used for unknown indication
     Route: 065
     Dates: start: 20240417, end: 202404

REACTIONS (3)
  - Ear discomfort [Not Recovered/Not Resolved]
  - Brain fog [Unknown]
  - Ear pain [Unknown]

NARRATIVE: CASE EVENT DATE: 20240417
